FAERS Safety Report 8609240-9 (Version None)
Quarter: 2012Q3

REPORT INFORMATION
  Report Type: 
  Country: None (occurrence: None)
  Receive Date: 20120808
  Receipt Date: 20120727
  Transmission Date: 20120928
  Serious: Yes (Hospitalization)
  Sender: FDA-Public Use
  Company Number: GER/GER/12/0025258

PATIENT
  Age: 27 Year
  Sex: Male
  Weight: 76 kg

DRUGS (3)
  1. QUETIAPINE FUMARATE [Suspect]
     Indication: DELUSION
     Dosage: 600 MG, 1 IN 1 D, ORAL
     Route: 048
     Dates: start: 20111205, end: 20120209
  2. PIPAMPERONE (PIPAMPERONE) [Concomitant]
  3. LORAZEPAM [Concomitant]

REACTIONS (3)
  - NEUTROPENIA [None]
  - LEUKOPENIA [None]
  - LYMPHOCYTOSIS [None]
